FAERS Safety Report 15771295 (Version 1)
Quarter: 2018Q4

REPORT INFORMATION
  Report Type: Spontaneous
  Country: JP (occurrence: JP)
  Receive Date: 20181228
  Receipt Date: 20181228
  Transmission Date: 20190205
  Serious: Yes (Other)
  Sender: FDA-Public Use
  Company Number: JP-PFIZER INC-2018490537

PATIENT
  Sex: Female

DRUGS (2)
  1. CABERGOLINE. [Suspect]
     Active Substance: CABERGOLINE
     Indication: PITUITARY TUMOUR BENIGN
  2. CABERGOLINE. [Suspect]
     Active Substance: CABERGOLINE
     Indication: HYPERPROLACTINAEMIA
     Dosage: UNK
     Route: 048
     Dates: start: 2013

REACTIONS (1)
  - Abortion induced [Unknown]
